FAERS Safety Report 9316562 (Version 2)
Quarter: 2013Q3

REPORT INFORMATION
  Report Type: Spontaneous
  Country: US (occurrence: US)
  Receive Date: 20130530
  Receipt Date: 20130723
  Transmission Date: 20140515
  Serious: No
  Sender: FDA-Public Use
  Company Number: US-PFIZER INC-2013163508

PATIENT
  Age: 72 Year
  Sex: Female
  Weight: 82.09 kg

DRUGS (11)
  1. NEURONTIN [Suspect]
     Indication: NEURALGIA
     Dosage: 800 MG, 3X/DAY
  2. NEURONTIN [Suspect]
     Indication: PAIN IN EXTREMITY
  3. PRAVACHOL [Concomitant]
     Indication: BLOOD CHOLESTEROL INCREASED
     Dosage: UNK
  4. ATENOLOL [Concomitant]
     Indication: BLOOD PRESSURE ABNORMAL
     Dosage: 50 MG, 1X/DAY
  5. COZAAR [Concomitant]
     Indication: BLOOD PRESSURE ABNORMAL
     Dosage: 50 MG, 1X/DAY
  6. HCTZ [Concomitant]
     Indication: BLOOD PRESSURE ABNORMAL
     Dosage: 25 MG, 1X/DAY
  7. SYNTHROID [Concomitant]
     Indication: THYROID DISORDER
     Dosage: UNK, 1X/DAY
  8. CENTRUM SILVER WOMEN^S 50+ [Concomitant]
     Indication: VITAMIN SUPPLEMENTATION
     Dosage: UNK, 1X/DAY
  9. BABY ASPIRIN [Concomitant]
     Indication: ATRIOVENTRICULAR BLOCK
     Dosage: 81 MG, 1X/DAY
  10. POTASSIUM [Concomitant]
     Dosage: UNK
  11. GLIPIZIDE [Concomitant]
     Indication: GLUCOSE TOLERANCE IMPAIRED
     Dosage: 1 MG, UNK

REACTIONS (3)
  - Off label use [Unknown]
  - Drug ineffective for unapproved indication [Unknown]
  - Feeling cold [Unknown]
